FAERS Safety Report 13075720 (Version 1)
Quarter: 2016Q4

REPORT INFORMATION
  Report Type: Spontaneous
  Country: US (occurrence: US)
  Receive Date: 20161229
  Receipt Date: 20161229
  Transmission Date: 20170207
  Serious: Yes (Death)
  Sender: FDA-Public Use
  Company Number: None

PATIENT
  Age: 66 Year
  Sex: Male
  Weight: 62.1 kg

DRUGS (6)
  1. VITAMIN D [Concomitant]
     Active Substance: CHOLECALCIFEROL
  2. NIACIN. [Concomitant]
     Active Substance: NIACIN
  3. ASPRILOW [Concomitant]
  4. SALINE NASAL SPRAY [Concomitant]
     Active Substance: SODIUM CHLORIDE
  5. GOLYTELY [Suspect]
     Active Substance: POLYETHYLENE GLYCOL 3350\POTASSIUM CHLORIDE\SODIUM BICARBONATE\SODIUM CHLORIDE\SODIUM SULFATE ANHYDROUS
     Indication: CONSTIPATION
     Dosage: ?          OTHER FREQUENCY:1 GLASS EVERY 10 M;?
     Route: 048
  6. BENADRYL [Concomitant]
     Active Substance: DIPHENHYDRAMINE HYDROCHLORIDE

REACTIONS (7)
  - Constipation [None]
  - Renal failure [None]
  - Arteriosclerosis [None]
  - Asthenia [None]
  - Anaemia [None]
  - Weight decreased [None]
  - Hepatic failure [None]

NARRATIVE: CASE EVENT DATE: 20151111
